FAERS Safety Report 8832912 (Version 3)
Quarter: 2013Q2

REPORT INFORMATION
  Report Type: Spontaneous
  Country: JP (occurrence: JP)
  Receive Date: 20121010
  Receipt Date: 20130416
  Transmission Date: 20140414
  Serious: Yes (Hospitalization)
  Sender: FDA-Public Use
  Company Number: JP-ELI_LILLY_AND_COMPANY-JP201209002497

PATIENT
  Age: 81 Year
  Sex: Female
  Weight: 30 kg

DRUGS (6)
  1. FORTEO [Suspect]
     Indication: OSTEOPOROSIS
     Dosage: 20 UG, QD
     Route: 058
     Dates: start: 201203, end: 201208
  2. DEPAS [Concomitant]
     Indication: INSOMNIA
     Dosage: 0.5 MG, QD
     Route: 048
  3. DIART [Concomitant]
     Indication: OEDEMA
     Dosage: 60 MG, QD
     Route: 048
  4. FOIPAN [Concomitant]
     Indication: PANCREATITIS CHRONIC
     Dosage: 200 MG, BID
     Route: 048
  5. GASTER D [Concomitant]
     Indication: GASTRITIS
     Dosage: 20 MG, BID
  6. EPOGIN [Concomitant]
     Indication: NEPHROGENIC ANAEMIA
     Dosage: 6000 U, WEEKLY (1/W)
     Route: 058

REACTIONS (4)
  - Hypocalcaemia [Recovered/Resolved]
  - Renal failure acute [Recovered/Resolved]
  - Hyperuricaemia [Recovered/Resolved]
  - Blood parathyroid hormone increased [Recovering/Resolving]
